FAERS Safety Report 9310313 (Version 1)
Quarter: 2013Q2

REPORT INFORMATION
  Report Type: Spontaneous
  Country: US (occurrence: US)
  Receive Date: 20130527
  Receipt Date: 20130527
  Transmission Date: 20140414
  Serious: Yes (Hospitalization)
  Sender: FDA-Public Use
  Company Number: US-PFIZER INC-2013160026

PATIENT
  Age: 41 Year
  Sex: Female
  Weight: 99.77 kg

DRUGS (11)
  1. LYRICA [Suspect]
     Indication: FIBROMYALGIA
     Dosage: 75 MG, 3X/DAY
     Route: 048
  2. MORPHINE [Concomitant]
     Dosage: UNK
  3. HYDROCODONE [Concomitant]
     Dosage: UNK
  4. XARELTO [Concomitant]
     Dosage: UNK
  5. SYNTHROID [Concomitant]
     Dosage: UNK
  6. PREDNISONE [Concomitant]
     Dosage: UNK
  7. LORAZEPAM [Concomitant]
     Dosage: UNK
  8. FUROSEMIDE [Concomitant]
     Dosage: UNK
  9. PROPRANOLOL [Concomitant]
     Dosage: UNK
  10. BACLOFEN [Concomitant]
     Dosage: UNK
  11. POTASSIUM [Concomitant]
     Dosage: UNK

REACTIONS (3)
  - Thrombosis [Unknown]
  - Pulmonary thrombosis [Unknown]
  - Oedema peripheral [Unknown]
